FAERS Safety Report 17798721 (Version 1)
Quarter: 2020Q2

REPORT INFORMATION
  Report Type: Spontaneous
  Country: CA (occurrence: CA)
  Receive Date: 20200518
  Receipt Date: 20200518
  Transmission Date: 20200714
  Serious: Yes (Other)
  Sender: FDA-Public Use
  Company Number: CA-PFIZER INC-2020194632

PATIENT
  Sex: Female

DRUGS (2)
  1. HYDROMORPHONE HYDROCHLORIDE. [Suspect]
     Active Substance: HYDROMORPHONE HYDROCHLORIDE
     Dosage: UNK
     Route: 064
  2. COCAINE [Suspect]
     Active Substance: COCAINE
     Dosage: UNK
     Route: 064

REACTIONS (6)
  - Constipation [Unknown]
  - Foetal exposure during pregnancy [Unknown]
  - Agitation neonatal [Unknown]
  - Drug withdrawal syndrome neonatal [Unknown]
  - Selective eating disorder [Unknown]
  - Cough [Unknown]
